FAERS Safety Report 25979758 (Version 1)
Quarter: 2025Q4

REPORT INFORMATION
  Report Type: Spontaneous
  Country: EU (occurrence: EU)
  Receive Date: 20251030
  Receipt Date: 20251030
  Transmission Date: 20260118
  Serious: Yes (Other)
  Sender: TEVA
  Company Number: EU-TEVA-VS-3386190

PATIENT
  Age: 45 Year
  Sex: Male

DRUGS (5)
  1. CISPLATIN [Suspect]
     Active Substance: CISPLATIN
     Indication: Nasopharyngeal cancer
     Dosage: COMPLETED THREE CYCLES OF CISPLATIN (100 MG/M2) EVERY 21 DAYS
     Route: 065
     Dates: end: 202210
  2. CISPLATIN [Suspect]
     Active Substance: CISPLATIN
     Indication: Nasopharyngeal cancer
     Dosage: CISPLATIN (100 MG/M2) EVERY 21 DAYS FOR THREE CYCLES, COMPLETED IN JANUARY 2023
     Route: 065
     Dates: end: 202301
  3. PACLITAXEL [Suspect]
     Active Substance: PACLITAXEL
     Indication: Nasopharyngeal cancer
     Dosage: (175 MG/M2), COMPLETING SIX CYCLES BY OCTOBER 2023
     Route: 065
     Dates: end: 202310
  4. CARBOPLATIN [Suspect]
     Active Substance: CARBOPLATIN
     Indication: Nasopharyngeal cancer
     Route: 065
  5. GEMCITABINE [Suspect]
     Active Substance: GEMCITABINE
     Indication: Nasopharyngeal cancer
     Dosage: 1250 MG/M2 EVERY 21 DAYS UNTIL OCTOBER 2022
     Route: 065
     Dates: end: 202210

REACTIONS (1)
  - Peripheral sensory neuropathy [Unknown]
